FAERS Safety Report 12985212 (Version 1)
Quarter: 2016Q4

REPORT INFORMATION
  Report Type: Spontaneous
  Country: US (occurrence: US)
  Receive Date: 20161129
  Receipt Date: 20161129
  Transmission Date: 20170207
  Serious: No
  Sender: FDA-Public Use
  Company Number: US-ALEMBIC PHARMACUETICALS LIMITED-2015SCAL000843

PATIENT

DRUGS (7)
  1. LEXAPRO [Suspect]
     Active Substance: ESCITALOPRAM OXALATE
     Indication: DEPRESSION
     Dosage: 10 MG, UNK
     Route: 048
     Dates: start: 20151012, end: 20151026
  2. MODAFINIL. [Suspect]
     Active Substance: MODAFINIL
     Indication: FIBROMYALGIA
  3. BENADRYL [Concomitant]
     Active Substance: DIPHENHYDRAMINE HYDROCHLORIDE
     Indication: HYPERSENSITIVITY
     Dosage: UNK
  4. MODAFINIL. [Suspect]
     Active Substance: MODAFINIL
     Indication: BACK PAIN
  5. MODAFINIL. [Suspect]
     Active Substance: MODAFINIL
     Indication: SOMNOLENCE
  6. MODAFINIL. [Suspect]
     Active Substance: MODAFINIL
     Indication: FATIGUE
     Dosage: 200 MG, BID, AT 6AM AND ONE TABLET AT NOON DAILY
     Route: 048
     Dates: start: 2005
  7. ALLEGRA [Concomitant]
     Active Substance: FEXOFENADINE HYDROCHLORIDE
     Indication: HYPERSENSITIVITY
     Dosage: UNK

REACTIONS (5)
  - Fall [Recovered/Resolved]
  - Depression [Not Recovered/Not Resolved]
  - Feeling abnormal [Recovered/Resolved]
  - Fatigue [Recovered/Resolved]
  - Tremor [Recovered/Resolved]

NARRATIVE: CASE EVENT DATE: 2013
